FAERS Safety Report 8085445-3 (Version None)
Quarter: 2012Q1

REPORT INFORMATION
  Report Type: 
  Country: None (occurrence: None)
  Receive Date: 20120128
  Receipt Date: 20110411
  Transmission Date: 20120608
  Serious: No
  Sender: FDA-Public Use
  Company Number: US-ABBOTT-11P-163-0706240-00

PATIENT
  Age: 28 Year
  Sex: Male

DRUGS (3)
  1. HUMIRA [Suspect]
     Indication: CROHN'S DISEASE
     Dates: start: 20110218
  2. PREDNISONE TAB [Concomitant]
     Indication: CROHN'S DISEASE
  3. PEPCID [Concomitant]
     Indication: ULCER

REACTIONS (6)
  - FATIGUE [None]
  - WRONG TECHNIQUE IN DRUG USAGE PROCESS [None]
  - ASTHENIA [None]
  - DRUG DOSE OMISSION [None]
  - MUSCLE TIGHTNESS [None]
  - INJECTION SITE PAIN [None]
